FAERS Safety Report 9514793 (Version 1)
Quarter: 2013Q1

REPORT INFORMATION
  Report Type: Spontaneous
  Country: US (occurrence: None)
  Receive Date: 20130305
  Receipt Date: 20130305
  Transmission Date: 20140127
  Serious: Yes (Other)
  Sender: FDA-Public Use
  Company Number: 163-21880-12112252

PATIENT
  Age: 62 Year
  Sex: Male
  Weight: 72.12 kg

DRUGS (11)
  1. REVLIMID [Suspect]
     Indication: PLASMA CELL MYELOMA
     Dosage: 25 MG, 5 IN 1 D, PO
     Route: 048
     Dates: start: 200811
  2. ANTIBIOTICS (ANTIBIOTICS) [Concomitant]
  3. BABY ASPIRIN (ACETYLSALICYLIC ACID) [Concomitant]
  4. CEPHALEXIN (CEFALEXIN) [Concomitant]
  5. CYCLOBENZAPRINE HCL (CYCLOBENZAPRINE HYDROCHLORIDE) [Concomitant]
  6. FENTANYL (FENTANYL) [Concomitant]
  7. GABAPENTIN (GABAPENTIN) [Concomitant]
  8. LOSARTAN POTASSIUM (LOSARTAN POTASSIUM) [Concomitant]
  9. MELOXICAM (MELOXICAM) [Concomitant]
  10. MORPHINE SULFATE (MORPHINE SULFATE) INJECTION [Concomitant]
  11. ZOLPIDEM TARTRATE (ZOLPIDEM TARTRATE) [Concomitant]

REACTIONS (1)
  - Rash erythematous [None]
